FAERS Safety Report 12351766 (Version 1)
Quarter: 2016Q2

REPORT INFORMATION
  Report Type: Spontaneous
  Country: US (occurrence: US)
  Receive Date: 20160510
  Receipt Date: 20160510
  Transmission Date: 20160815
  Serious: No
  Sender: FDA-Public Use
  Company Number: US-ACTELION-A-US2016-135537

PATIENT
  Age: 66 Year
  Sex: Female

DRUGS (2)
  1. SILDENAFIL. [Concomitant]
     Active Substance: SILDENAFIL
  2. UPTRAVI [Suspect]
     Active Substance: SELEXIPAG
     Indication: PRODUCT USED FOR UNKNOWN INDICATION
     Dosage: 200 MCG, BID
     Route: 048
     Dates: start: 20160405

REACTIONS (7)
  - Drug intolerance [Unknown]
  - Abdominal discomfort [Unknown]
  - Oxygen consumption increased [Unknown]
  - Diarrhoea [Unknown]
  - Musculoskeletal disorder [Unknown]
  - Feeling abnormal [Unknown]
  - Pulmonary arterial hypertension [Unknown]
